FAERS Safety Report 9762558 (Version 1)
Quarter: 2013Q4

REPORT INFORMATION
  Report Type: Spontaneous
  Country: US (occurrence: US)
  Receive Date: 20131216
  Receipt Date: 20131216
  Transmission Date: 20140711
  Serious: No
  Sender: FDA-Public Use
  Company Number: US-BIOGENIDEC-2013BI106767

PATIENT
  Sex: Female

DRUGS (12)
  1. TECFIDERA [Suspect]
     Indication: MULTIPLE SCLEROSIS
     Route: 048
     Dates: start: 201309
  2. TECFIDERA [Suspect]
     Indication: MULTIPLE SCLEROSIS
     Route: 048
     Dates: end: 201309
  3. SYNTHROID [Concomitant]
  4. VITAMIN B12 [Concomitant]
  5. GLUCOSAMINE CHONDROITIN [Concomitant]
  6. SELENIUM [Concomitant]
  7. VITAMIN C [Concomitant]
  8. COQ-10 [Concomitant]
  9. ZINC [Concomitant]
  10. VITAMIN D3 [Concomitant]
  11. VITAMIN B12 [Concomitant]
  12. OMEGA COMPLEX [Concomitant]

REACTIONS (1)
  - Gastrointestinal disorder [Unknown]
